FAERS Safety Report 20051609 (Version 2)
Quarter: 2022Q4

REPORT INFORMATION
  Report Type: Spontaneous
  Country: US (occurrence: US)
  Receive Date: 20211110
  Receipt Date: 20221018
  Transmission Date: 20230113
  Serious: No
  Sender: FDA-Public Use
  Company Number: US-SA-SAC20211103001338

PATIENT
  Age: 38 Year
  Sex: Male

DRUGS (1)
  1. DUPIXENT [Suspect]
     Active Substance: DUPILUMAB
     Indication: Dermatitis atopic
     Dosage: 300 MG, OTHER
     Route: 058
     Dates: start: 201810

REACTIONS (5)
  - Food allergy [Unknown]
  - Paraesthesia oral [Unknown]
  - Paraesthesia [Unknown]
  - Hypoaesthesia [Unknown]
  - Nerve compression [Unknown]

NARRATIVE: CASE EVENT DATE: 20211101
